FAERS Safety Report 21225698 (Version 2)
Quarter: 2022Q3

REPORT INFORMATION
  Report Type: Spontaneous
  Country: AT (occurrence: AT)
  Receive Date: 20220818
  Receipt Date: 20220830
  Transmission Date: 20221027
  Serious: Yes (Other)
  Sender: FDA-Public Use
  Company Number: AT-BAYER-2022A113730

PATIENT
  Age: 80 Year

DRUGS (5)
  1. EYLEA [Suspect]
     Active Substance: AFLIBERCEPT
     Indication: Product used for unknown indication
     Dosage: 1 DF, ONCE, LEFT EYE SOLUTION FOR INJECTION
     Route: 031
     Dates: start: 20220428, end: 20220428
  2. EYLEA [Suspect]
     Active Substance: AFLIBERCEPT
     Dosage: UNK, SOLUTION FOR INJECTION
     Route: 031
  3. EYLEA [Suspect]
     Active Substance: AFLIBERCEPT
     Dosage: UNK, SOLUTION FOR INJECTION
     Route: 031
  4. EYLEA [Suspect]
     Active Substance: AFLIBERCEPT
     Dosage: UNK, SOLUTION FOR INJECTION
     Route: 031
  5. EYLEA [Suspect]
     Active Substance: AFLIBERCEPT
     Dosage: UNK, SOLUTION FOR INJECTION
     Route: 031

REACTIONS (7)
  - Blindness unilateral [Recovering/Resolving]
  - Vitreous opacities [Unknown]
  - Eye inflammation [Unknown]
  - Anterior chamber cell [Unknown]
  - Vitreal cells [Unknown]
  - Intra-ocular injection complication [Unknown]
  - Multiple use of single-use product [Unknown]
